FAERS Safety Report 6998051-6 (Version None)
Quarter: 2010Q3

REPORT INFORMATION
  Report Type: 
  Country: None (occurrence: None)
  Receive Date: 20100920
  Receipt Date: 20090916
  Transmission Date: 20110219
  Serious: Yes (Hospitalization)
  Sender: FDA-Public Use
  Company Number: US-ASTRAZENECA-2009SE13484

PATIENT
  Age: 28 Year
  Sex: Female
  Weight: 53.1 kg

DRUGS (4)
  1. SEROQUEL [Suspect]
     Indication: BIPOLAR DISORDER
     Route: 048
     Dates: start: 20090601, end: 20090816
  2. SEROQUEL [Suspect]
     Route: 048
     Dates: start: 20090816
  3. CHANTIX [Concomitant]
     Indication: SMOKING CESSATION THERAPY
  4. TAGAMET [Concomitant]
     Indication: DYSPEPSIA

REACTIONS (1)
  - SUICIDE ATTEMPT [None]
